FAERS Safety Report 9359700 (Version 1)
Quarter: 2013Q2

REPORT INFORMATION
  Report Type: Spontaneous
  Country: US (occurrence: US)
  Receive Date: 20130621
  Receipt Date: 20130621
  Transmission Date: 20140414
  Serious: Yes (Other)
  Sender: FDA-Public Use
  Company Number: US-009507513-1306USA007069

PATIENT
  Age: 23 Year
  Sex: Female
  Weight: 51.7 kg

DRUGS (2)
  1. IMPLANON [Suspect]
     Indication: CONTRACEPTION
     Dosage: 68 MG, ONCE EVER 3 YEARS
     Route: 059
     Dates: start: 20130426, end: 20130611
  2. INSULIN [Concomitant]

REACTIONS (5)
  - Diabetic coma [Unknown]
  - Unintended pregnancy [Unknown]
  - Pelvic pain [Unknown]
  - Product quality issue [Unknown]
  - Medical device complication [Unknown]
